FAERS Safety Report 10213416 (Version 1)
Quarter: 2014Q2

REPORT INFORMATION
  Report Type: Spontaneous
  Country: US (occurrence: None)
  Receive Date: 20140530
  Receipt Date: 20140530
  Transmission Date: 20141212
  Serious: Yes (Hospitalization)
  Sender: FDA-Public Use
  Company Number: None

PATIENT
  Age: 73 Year
  Sex: Male
  Weight: 74.8 kg

DRUGS (10)
  1. CETUXIMAB (ERBITUX) (714692) [Suspect]
  2. DOCETAXEL (TAXOTERE) [Suspect]
  3. ASPIRIN [Concomitant]
  4. ATROVISTATIN [Concomitant]
  5. CLEOCIN TOPICAL [Concomitant]
  6. DEXAMETHASONE [Concomitant]
  7. FLUOXETINE [Concomitant]
  8. HYDROCODONE ACETAMENOPHEN [Concomitant]
  9. LORAZEPAM [Concomitant]
  10. METFORMIN [Concomitant]

REACTIONS (4)
  - Fatigue [None]
  - Weight decreased [None]
  - Malaise [None]
  - Vomiting [None]
